FAERS Safety Report 5801599-0 (Version None)
Quarter: 2008Q3

REPORT INFORMATION
  Report Type: 
  Country: None (occurrence: None)
  Receive Date: 20080702
  Receipt Date: 20080623
  Transmission Date: 20090109
  Serious: Yes (Life-Threatening, Hospitalization, Other)
  Sender: FDA-Public Use
  Company Number: 08H-163-0314496-00

PATIENT
  Age: 20 Year
  Sex: Male

DRUGS (4)
  1. METOPROLOL TARTRATE [Suspect]
     Indication: HEART RATE
     Dosage: INTRAVENOUS
     Route: 042
  2. DILTIAZEM HYDROCHLORIDE [Suspect]
     Indication: ATRIAL FIBRILLATION
     Dosage: 25 MG, INTRAVENOUS, 5 MG/HOUR, INTRAVENOUS DRIP
     Route: 042
  3. DILTIAZEM HYDROCHLORIDE [Suspect]
     Indication: HEART RATE
     Dosage: 25 MG, INTRAVENOUS, 5 MG/HOUR, INTRAVENOUS DRIP
     Route: 042
  4. ISOPROTERENOL (ISOPRENALINE) [Concomitant]

REACTIONS (4)
  - ACCESSORY CARDIAC PATHWAY [None]
  - DRUG INTERACTION [None]
  - VENTRICULAR FIBRILLATION [None]
  - VENTRICULAR TACHYCARDIA [None]
